FAERS Safety Report 6295856-4 (Version None)
Quarter: 2009Q3

REPORT INFORMATION
  Report Type: 
  Country: None (occurrence: None)
  Receive Date: 20090803
  Receipt Date: 20090803
  Transmission Date: 20100115
  Serious: Yes (Death, Life-Threatening, Hospitalization)
  Sender: FDA-Public Use
  Company Number: None

PATIENT
  Age: 72 Year
  Sex: Female
  Weight: 65 kg

DRUGS (8)
  1. OCTREOTIDE/PLACEBO 100 MCG NOVARTIS [Suspect]
     Indication: MALIGNANT ASCITES
     Dosage: 100 MCG ONE TIME SQ
     Dates: start: 20090604, end: 20090604
  2. OCTREOTIDE/PLACEBO 30 MG NOVARTIS [Suspect]
     Indication: MALIGNANT ASCITES
     Dosage: 30 MG MONTHLY IM
     Route: 030
     Dates: start: 20090605, end: 20090605
  3. HERCEPTIN [Concomitant]
  4. PACLITAXEL [Concomitant]
  5. CARBOPLATIN [Concomitant]
  6. BEVACIZUMAB [Concomitant]
  7. EVISTA [Concomitant]
  8. LEVOTHYROXINE [Concomitant]

REACTIONS (9)
  - BACTERAEMIA [None]
  - BLOOD ALBUMIN DECREASED [None]
  - DISEASE PROGRESSION [None]
  - HEPATIC FAILURE [None]
  - HYPOTENSION [None]
  - HYPOXIA [None]
  - ILEUS [None]
  - METASTASES TO ABDOMINAL CAVITY [None]
  - OBSTRUCTION [None]
